FAERS Safety Report 10550172 (Version 2)
Quarter: 2014Q4

REPORT INFORMATION
  Report Type: Spontaneous
  Country: BR (occurrence: BR)
  Receive Date: 20141028
  Receipt Date: 20141208
  Transmission Date: 20150529
  Serious: Yes (Hospitalization)
  Sender: FDA-Public Use
  Company Number: BR-B.I. PHARMACEUTICALS,INC./RIDGEFIELD-2014-BI-51383BR

PATIENT
  Age: 53 Year
  Sex: Female
  Weight: 82 kg

DRUGS (9)
  1. LIPOLEX [Concomitant]
     Indication: BLOOD TRIGLYCERIDES
     Dosage: 1 ANZ
     Route: 048
     Dates: start: 2010, end: 20141010
  2. ENALAPRIL [Concomitant]
     Active Substance: ENALAPRIL
     Indication: HYPERTENSION
     Dosage: 1 ANZ
     Route: 048
     Dates: start: 2008, end: 20141010
  3. TRADJENTA [Suspect]
     Active Substance: LINAGLIPTIN
     Indication: TYPE 2 DIABETES MELLITUS
     Dosage: 5 MG
     Route: 048
     Dates: start: 20140901, end: 20141001
  4. DAFORIN [Concomitant]
     Indication: DEPRESSION
     Dosage: 1 ANZ
     Route: 048
     Dates: start: 2007, end: 20141010
  5. ESOMEPRAZOL [Concomitant]
     Active Substance: ESOMEPRAZOLE
     Indication: GASTROOESOPHAGEAL REFLUX DISEASE
     Route: 048
     Dates: start: 20141013
  6. INSULIN HUN [Concomitant]
     Indication: TYPE 2 DIABETES MELLITUS
     Route: 058
     Dates: start: 20141013
  7. INSULIN NOVOMIX [Concomitant]
     Indication: TYPE 2 DIABETES MELLITUS
     Dosage: STRENGTH: 30
     Route: 058
     Dates: start: 20141013
  8. METFORMIN [Concomitant]
     Active Substance: METFORMIN HYDROCHLORIDE
     Indication: DIABETES MELLITUS
     Dosage: 3 ANZ
     Route: 048
     Dates: start: 2010, end: 20141010
  9. VONAU FLEX [Concomitant]
     Indication: GASTROOESOPHAGEAL REFLUX DISEASE
     Route: 048
     Dates: start: 20141013

REACTIONS (8)
  - Rash [Recovered/Resolved]
  - Vomiting [Recovered/Resolved]
  - Blood pressure increased [Recovered/Resolved]
  - Headache [Recovered/Resolved]
  - Hepatic enzyme increased [Recovered/Resolved]
  - Abdominal pain upper [Recovered/Resolved]
  - Pancreatic disorder [Recovered/Resolved]
  - Diabetes mellitus inadequate control [Unknown]

NARRATIVE: CASE EVENT DATE: 20140915
